FAERS Safety Report 7491290-X (Version None)
Quarter: 2011Q2

REPORT INFORMATION
  Report Type: 
  Country: None (occurrence: None)
  Receive Date: 20110519
  Receipt Date: 20110512
  Transmission Date: 20111010
  Serious: Yes (Hospitalization)
  Sender: FDA-Public Use
  Company Number: B0698401A

PATIENT
  Sex: Female
  Weight: 49 kg

DRUGS (22)
  1. CYCLOPHOSPHAMIDE [Suspect]
     Indication: STEM CELL TRANSPLANT
     Dosage: 3000MG PER DAY
     Dates: start: 20100301, end: 20100302
  2. ETOPOSIDE [Suspect]
     Indication: STEM CELL TRANSPLANT
     Dosage: 760MG PER DAY
     Route: 042
     Dates: start: 20100301, end: 20100303
  3. GRAN [Concomitant]
     Dates: start: 20100317, end: 20100318
  4. DECADRON [Concomitant]
     Dosage: 33MG PER DAY
     Dates: start: 20100304, end: 20100304
  5. TOBRACIN [Concomitant]
     Dosage: 150MG PER DAY
     Dates: start: 20100312, end: 20100314
  6. MECOBALAMIN [Concomitant]
     Dosage: 1500MCG PER DAY
     Route: 048
     Dates: start: 20100227, end: 20100305
  7. PENTAZOCINE LACTATE [Concomitant]
     Dosage: 45MG PER DAY
     Dates: start: 20100307, end: 20100314
  8. AMBISOME [Concomitant]
     Dosage: 125MG PER DAY
     Route: 042
     Dates: start: 20100312, end: 20100318
  9. ALKERAN [Suspect]
     Indication: STEM CELL TRANSPLANT
     Dosage: 150MG PER DAY
     Route: 042
     Dates: start: 20100304, end: 20100304
  10. ACYCRIL [Concomitant]
     Dosage: 750MG PER DAY
     Dates: start: 20100308, end: 20100318
  11. PRODIF [Concomitant]
     Dosage: 2.5ML PER DAY
     Route: 042
     Dates: start: 20100308, end: 20100318
  12. ACIROVEC [Concomitant]
     Dosage: 400MG PER DAY
     Route: 048
     Dates: start: 20100406
  13. ZINC/MAGNESIUM [Concomitant]
     Dosage: 2ML PER DAY
     Route: 042
     Dates: start: 20100311, end: 20100318
  14. LANSOPRAZOLE [Suspect]
     Dosage: 30MG PER DAY
     Route: 048
     Dates: start: 20100227, end: 20100320
  15. FILGRASTIM [Concomitant]
     Dates: start: 20100313, end: 20100317
  16. BACTRIM [Concomitant]
     Dosage: 400MG PER DAY
     Route: 048
     Dates: start: 20100227, end: 20100610
  17. ACIROVEC [Concomitant]
     Dosage: 1000MG PER DAY
     Route: 048
     Dates: start: 20100307, end: 20100312
  18. FLUCONAZOLE [Concomitant]
     Dosage: 200MG PER DAY
     Route: 048
     Dates: start: 20100307, end: 20100312
  19. UNKNOWN DRUG [Concomitant]
     Dosage: 60ML PER DAY
     Dates: start: 20100305, end: 20100307
  20. CONTOMIN [Concomitant]
     Dosage: 25MG PER DAY
     Route: 030
     Dates: start: 20100313, end: 20100318
  21. UNKNOWN DRUG [Concomitant]
     Dosage: 20ML PER DAY
     Dates: start: 20100304, end: 20100304
  22. SOLU-CORTEF [Concomitant]
     Dosage: 200MG PER DAY
     Dates: start: 20100306, end: 20100306

REACTIONS (1)
  - SEPSIS [None]
